FAERS Safety Report 15049638 (Version 1)
Quarter: 2018Q2

REPORT INFORMATION
  Report Type: Spontaneous
  Country: US (occurrence: US)
  Receive Date: 20180622
  Receipt Date: 20180622
  Transmission Date: 20180711
  Serious: No
  Sender: FDA-Public Use
  Company Number: US-ASTRAZENECA-2018SE69469

PATIENT
  Sex: Male

DRUGS (1)
  1. BYETTA [Suspect]
     Active Substance: EXENATIDE
     Dosage: 10 MCG PEN, 0.4 ML, TWICE A DAY
     Route: 058
     Dates: start: 20170414

REACTIONS (4)
  - Hyperlipidaemia [Unknown]
  - Type 2 diabetes mellitus [Unknown]
  - Injection site haemorrhage [Unknown]
  - Hypertension [Unknown]
